FAERS Safety Report 6743467-6 (Version None)
Quarter: 2010Q2

REPORT INFORMATION
  Report Type: 
  Country: None (occurrence: None)
  Receive Date: 20100527
  Receipt Date: 20100517
  Transmission Date: 20101027
  Serious: Yes (Hospitalization)
  Sender: FDA-Public Use
  Company Number: TW-MYLANLABS-2010S1008646

PATIENT
  Age: 69 Year
  Sex: Male
  Weight: 39 kg

DRUGS (2)
  1. THIAMAZOLE [Suspect]
     Indication: HYPERTHYROIDISM
     Dosage: IN DIVIDED DOSES
  2. PROPRANOLOL [Concomitant]
     Indication: HYPERTHYROIDISM

REACTIONS (2)
  - CHOLECYSTITIS ACUTE [None]
  - CHOLESTASIS [None]
